FAERS Safety Report 25541840 (Version 1)
Quarter: 2025Q3

REPORT INFORMATION
  Report Type: Spontaneous
  Country: EU (occurrence: EU)
  Receive Date: 20250711
  Receipt Date: 20250711
  Transmission Date: 20251020
  Serious: Yes (Hospitalization, Other)
  Sender: BOEHRINGER INGELHEIM
  Company Number: EU-BoehringerIngelheim-2025-BI-081107

PATIENT
  Age: 65 Year
  Sex: Female

DRUGS (7)
  1. NEVIRAPINE [Suspect]
     Active Substance: NEVIRAPINE
     Indication: HIV infection
  2. MIRTAZAPINE [Suspect]
     Active Substance: MIRTAZAPINE
     Indication: Major depression
  3. MIRTAZAPINE [Suspect]
     Active Substance: MIRTAZAPINE
  4. ALPRAZOLAM [Suspect]
     Active Substance: ALPRAZOLAM
     Indication: Major depression
  5. ALPRAZOLAM [Suspect]
     Active Substance: ALPRAZOLAM
  6. BICTEGRAVIR\EMTRICITABINE\TENOFOVIR ALAFENAMIDE [Concomitant]
     Active Substance: BICTEGRAVIR\EMTRICITABINE\TENOFOVIR ALAFENAMIDE
     Indication: HIV infection
  7. tenofovir disoproxil  fumarate/emtricitabine [Concomitant]
     Indication: HIV infection

REACTIONS (6)
  - Anogenital warts [Recovered/Resolved]
  - Psychotic disorder [Recovered/Resolved]
  - Somnolence [Recovered/Resolved]
  - Lethargy [Recovered/Resolved]
  - Cognitive disorder [Recovered/Resolved]
  - Toxicity to various agents [Recovered/Resolved]
